FAERS Safety Report 10226556 (Version 1)
Quarter: 2014Q2

REPORT INFORMATION
  Report Type: Spontaneous
  Country: JP (occurrence: JP)
  Receive Date: 20140609
  Receipt Date: 20140609
  Transmission Date: 20141212
  Serious: No
  Sender: FDA-Public Use
  Company Number: JP-TAKEDA-2014TJP006497

PATIENT
  Age: 73 Year
  Sex: Male

DRUGS (6)
  1. LANSAP 400 [Suspect]
     Indication: HELICOBACTER INFECTION
     Dosage: UNK
     Route: 048
     Dates: start: 20140424, end: 20140430
  2. JANUVIA [Concomitant]
     Dosage: UNK
     Route: 048
  3. ARTIST [Concomitant]
     Dosage: UNK
     Route: 048
  4. GASTER D [Concomitant]
     Dosage: UNK
     Route: 048
  5. PRAZAXA [Concomitant]
     Dosage: UNK
     Route: 048
  6. LENDORMIN D [Concomitant]
     Dosage: UNK
     Route: 048

REACTIONS (1)
  - Diplopia [Recovered/Resolved]
